FAERS Safety Report 5111206-0 (Version None)
Quarter: 2006Q3

REPORT INFORMATION
  Report Type: 
  Country: None (occurrence: None)
  Receive Date: 20060731
  Receipt Date: 20060510
  Transmission Date: 20061208
  Serious: No
  Sender: FDA-Public Use
  Company Number: 2006PV013646

PATIENT
  Age: 68 Year
  Sex: Male
  Weight: 154.223 kg

DRUGS (11)
  1. BYETTA [Suspect]
     Indication: DIABETES MELLITUS NON-INSULIN-DEPENDENT
     Dosage: 5 MCG BID SC
     Route: 058
     Dates: start: 20060301
  2. MESTINON [Suspect]
     Dosage: 60 MG TID
  3. GLIPIZIDE [Concomitant]
  4. ACTOS [Concomitant]
  5. IMURAN [Concomitant]
  6. CRDURA [Concomitant]
  7. CELEBREX [Concomitant]
  8. FUROSEMIDE [Concomitant]
  9. PREVACID [Concomitant]
  10. POTASSIUM CHLORIDE [Concomitant]
  11. ATACAND [Concomitant]

REACTIONS (6)
  - ABDOMINAL PAIN UPPER [None]
  - ASTHENIA [None]
  - MYASTHENIA GRAVIS [None]
  - NAUSEA [None]
  - UNEVALUABLE EVENT [None]
  - WEIGHT DECREASED [None]
